FAERS Safety Report 9604197 (Version 2)
Quarter: 2014Q1

REPORT INFORMATION
  Report Type: Report from Study
  Country: JP (occurrence: JP)
  Receive Date: 20131008
  Receipt Date: 20140304
  Transmission Date: 20141002
  Serious: Yes (Hospitalization)
  Sender: FDA-Public Use
  Company Number: JP-JNJFOC-20131003046

PATIENT
  Age: 48 Year
  Sex: Male

DRUGS (8)
  1. STELARA [Suspect]
     Indication: PSORIASIS
     Route: 058
     Dates: start: 20130605, end: 20130605
  2. STELARA [Suspect]
     Indication: PSORIASIS
     Route: 058
     Dates: start: 20130904
  3. STELARA [Suspect]
     Indication: PSORIASIS
     Route: 058
     Dates: start: 20130306, end: 20130306
  4. STELARA [Suspect]
     Indication: PSORIASIS
     Route: 058
     Dates: start: 20121205, end: 20121205
  5. STELARA [Suspect]
     Indication: PSORIASIS
     Route: 058
     Dates: start: 20120829, end: 20120829
  6. STELARA [Suspect]
     Indication: PSORIASIS
     Route: 058
     Dates: start: 20120801, end: 20120801
  7. SPEEL M [Concomitant]
     Indication: HYPERKERATOSIS
     Route: 061
     Dates: end: 20130327
  8. KINDAVATE [Concomitant]
     Indication: PSORIASIS
     Route: 061
     Dates: start: 20130605

REACTIONS (1)
  - Appendicitis [Recovered/Resolved]
